FAERS Safety Report 10455716 (Version 1)
Quarter: 2014Q3

REPORT INFORMATION
  Report Type: Spontaneous
  Country: US (occurrence: None)
  Receive Date: 20140915
  Receipt Date: 20140915
  Transmission Date: 20150326
  Serious: Yes (Life-Threatening, Hospitalization, Disabling)
  Sender: FDA-Public Use
  Company Number: None

PATIENT
  Age: 26 Year
  Sex: Female
  Weight: 67.13 kg

DRUGS (1)
  1. NEXPLANON [Suspect]
     Active Substance: ETONOGESTREL
     Indication: CONTRACEPTION
     Dates: start: 20120904, end: 20140910

REACTIONS (5)
  - Peritoneal haemorrhage [None]
  - Pregnancy with implant contraceptive [None]
  - Maternal exposure during pregnancy [None]
  - Ruptured ectopic pregnancy [None]
  - Ovarian cyst [None]

NARRATIVE: CASE EVENT DATE: 20140910
